FAERS Safety Report 25420914 (Version 1)
Quarter: 2025Q2

REPORT INFORMATION
  Report Type: Spontaneous
  Country: HR (occurrence: HR)
  Receive Date: 20250611
  Receipt Date: 20250611
  Transmission Date: 20250717
  Serious: Yes (Other)
  Sender: BRISTOL-MYERS SQUIBB COMPANY
  Company Number: HR-BRISTOL-MYERS SQUIBB COMPANY-2025-080363

PATIENT
  Age: 54 Year
  Sex: Female

DRUGS (1)
  1. OPDIVO [Suspect]
     Active Substance: NIVOLUMAB
     Indication: Metastatic malignant melanoma
     Dosage: 4-WEEK INTERVALS, 480 MG FLAT DOSE PER CYCLE
     Route: 042
     Dates: start: 201907, end: 202009

REACTIONS (8)
  - Pigmentation disorder [Unknown]
  - Autoimmune hypothyroidism [Unknown]
  - Condition aggravated [Unknown]
  - Immune-mediated enterocolitis [Recovering/Resolving]
  - Pyrexia [Unknown]
  - Haematochezia [Unknown]
  - Irritable bowel syndrome [Unknown]
  - Clostridium difficile infection [Unknown]

NARRATIVE: CASE EVENT DATE: 20200301
